FAERS Safety Report 13959795 (Version 2)
Quarter: 2018Q1

REPORT INFORMATION
  Report Type: Spontaneous
  Country: US (occurrence: US)
  Receive Date: 20170911
  Receipt Date: 20180104
  Transmission Date: 20180508
  Serious: Yes (Hospitalization)
  Sender: FDA-Public Use
  Company Number: US-DSJP-DSU-2017-136544

PATIENT

DRUGS (1)
  1. BENICAR HCT [Suspect]
     Active Substance: HYDROCHLOROTHIAZIDE\OLMESARTAN MEDOXOMIL
     Indication: PRODUCT USED FOR UNKNOWN INDICATION
     Dosage: 40/12.5 MG, QD
     Route: 048
     Dates: start: 20110524, end: 20131218

REACTIONS (11)
  - Weight decreased [Recovered/Resolved]
  - Dehydration [Recovered/Resolved]
  - Acquired oesophageal web [Unknown]
  - Diverticulum intestinal [Unknown]
  - Abdominal pain [Recovered/Resolved]
  - Diarrhoea [Recovered/Resolved]
  - Haematochezia [Unknown]
  - Anaemia [Unknown]
  - Nausea [Recovered/Resolved]
  - Hiatus hernia [Unknown]
  - Vomiting [Recovered/Resolved]

NARRATIVE: CASE EVENT DATE: 2011
